FAERS Safety Report 19589556 (Version 1)
Quarter: 2021Q3

REPORT INFORMATION
  Report Type: Spontaneous
  Country: FR (occurrence: FR)
  Receive Date: 20210721
  Receipt Date: 20210721
  Transmission Date: 20211014
  Serious: Yes (Hospitalization)
  Sender: FDA-Public Use
  Company Number: FR-MYLANLABS-2021M1043617

PATIENT
  Age: 25 Year
  Sex: Male
  Weight: 54 kg

DRUGS (3)
  1. ETOPOSIDE. [Suspect]
     Active Substance: ETOPOSIDE
     Indication: BURKITT^S LYMPHOMA
     Dosage: 200 MILLIGRAM/SQ. METER, QD
     Route: 042
     Dates: start: 20201227, end: 20201230
  2. CYTARABINE. [Suspect]
     Active Substance: CYTARABINE
     Indication: BURKITT^S LYMPHOMA
     Dosage: 100 MILLIGRAM/SQ. METER, QD
     Route: 041
     Dates: start: 20201226, end: 20201230
  3. CYTARABINE. [Suspect]
     Active Substance: CYTARABINE
     Dosage: 3000 MILLIGRAM/SQ. METER, QD
     Route: 042
     Dates: start: 20201227, end: 20201230

REACTIONS (3)
  - Cardiac disorder [Not Recovered/Not Resolved]
  - Ejection fraction decreased [Not Recovered/Not Resolved]
  - Pericarditis [Recovering/Resolving]

NARRATIVE: CASE EVENT DATE: 20210105
